FAERS Safety Report 19935900 (Version 2)
Quarter: 2021Q4

REPORT INFORMATION
  Report Type: Spontaneous
  Country: JP (occurrence: JP)
  Receive Date: 20211008
  Receipt Date: 20211103
  Transmission Date: 20220303
  Serious: Yes (Hospitalization, Other)
  Sender: FDA-Public Use
  Company Number: JP-ALLERGAN-2134140US

PATIENT

DRUGS (1)
  1. ASENAPINE MALEATE [Suspect]
     Active Substance: ASENAPINE MALEATE
     Indication: Product used for unknown indication
     Dosage: UNK

REACTIONS (8)
  - Cognitive disorder [Unknown]
  - Urinary retention [Unknown]
  - Electrocardiogram QT prolonged [Unknown]
  - Thirst [Unknown]
  - Constipation [Unknown]
  - Hypoaesthesia oral [Unknown]
  - Sedation [Unknown]
  - Adverse event [Unknown]
